FAERS Safety Report 8902452 (Version 1)
Quarter: 2012Q4

REPORT INFORMATION
  Report Type: 
  Country: CA (occurrence: CA)
  Receive Date: 20121112
  Receipt Date: 20121112
  Transmission Date: 20130627
  Serious: Yes (Other)
  Sender: FDA-Public Use
  Company Number: CA-ASTRAZENECA-2012SE83670

PATIENT
  Age: 43 Year
  Sex: Female
  Weight: 95.3 kg

DRUGS (1)
  1. ZOMIG [Suspect]
     Route: 048

REACTIONS (2)
  - Eye oedema [Recovered/Resolved]
  - Face oedema [Recovered/Resolved]
